FAERS Safety Report 9789711 (Version 1)
Quarter: 2013Q4

REPORT INFORMATION
  Report Type: Spontaneous
  Country: GB (occurrence: None)
  Receive Date: 20131227
  Receipt Date: 20131227
  Transmission Date: 20140711
  Serious: Yes (Life-Threatening, Hospitalization)
  Sender: FDA-Public Use
  Company Number: 2013P1022167

PATIENT
  Age: 74 Year
  Sex: Female

DRUGS (3)
  1. LISINOPRIL [Suspect]
     Dosage: X1
  2. VERAPAMIL [Suspect]
  3. NICORANDIL [Suspect]

REACTIONS (14)
  - Electrocardiogram ST segment depression [None]
  - Oliguria [None]
  - Renal failure acute [None]
  - Metabolic acidosis [None]
  - Hypoxia [None]
  - Overdose [None]
  - Hypotension [None]
  - Bradycardia [None]
  - Respiratory failure [None]
  - Agitation [None]
  - Contusion [None]
  - Blister [None]
  - Streptococcal infection [None]
  - Clostridial infection [None]
